FAERS Safety Report 25433874 (Version 1)
Quarter: 2025Q2

REPORT INFORMATION
  Report Type: Spontaneous
  Country: FR (occurrence: FR)
  Receive Date: 20250613
  Receipt Date: 20250613
  Transmission Date: 20250716
  Serious: Yes (Other)
  Sender: SANOFI AVENTIS
  Company Number: FR-BIOVITRUM-2025-FR-006073

PATIENT
  Age: 15 Year
  Sex: Male

DRUGS (3)
  1. EFANESOCTOCOG ALFA [Suspect]
     Active Substance: EFANESOCTOCOG ALFA
     Indication: Factor VIII deficiency
     Dosage: 3000 IU, QW
     Route: 065
  2. EFANESOCTOCOG ALFA [Suspect]
     Active Substance: EFANESOCTOCOG ALFA
     Dosage: 3000 IU, BIW
     Route: 065
     Dates: start: 20250418, end: 20250506
  3. EFANESOCTOCOG ALFA [Suspect]
     Active Substance: EFANESOCTOCOG ALFA
     Dosage: 3000 IU, QW
     Route: 065
     Dates: start: 202505

REACTIONS (1)
  - Haemarthrosis [Recovered/Resolved]
